FAERS Safety Report 25091213 (Version 1)
Quarter: 2025Q1

REPORT INFORMATION
  Report Type: Spontaneous
  Country: US (occurrence: US)
  Receive Date: 20250318
  Receipt Date: 20250318
  Transmission Date: 20250408
  Serious: No
  Sender: Unknown Manufacturer
  Company Number: US-THERATECHNOLOGIES INC.-2025-THE-TES-000037

PATIENT

DRUGS (1)
  1. EGRIFTA SV [Suspect]
     Active Substance: TESAMORELIN ACETATE
     Indication: Lipodystrophy acquired
     Dosage: 1.4 MG, QD (DAILY)
     Route: 058
     Dates: start: 202210

REACTIONS (3)
  - Fall [Unknown]
  - Skin laxity [Unknown]
  - Weight decreased [Unknown]

NARRATIVE: CASE EVENT DATE: 20240701
